FAERS Safety Report 8767153 (Version 1)
Quarter: 2012Q4

REPORT INFORMATION
  Report Type: 
  Country: US (occurrence: US)
  Receive Date: 20120904
  Receipt Date: 20120904
  Transmission Date: 20130627
  Serious: Yes (Other)
  Sender: FDA-Public Use
  Company Number: 2012SP002418

PATIENT
  Age: 57 Year
  Sex: Female

DRUGS (1)
  1. OMNARIS NASAL SPRAY [Suspect]
     Indication: HYPERSENSITIVITY
     Route: 045

REACTIONS (1)
  - Angle closure glaucoma [Recovered/Resolved]
